FAERS Safety Report 6483163-6 (Version None)
Quarter: 2009Q4

REPORT INFORMATION
  Report Type: 
  Country: None (occurrence: None)
  Receive Date: 20091209
  Receipt Date: 20091130
  Transmission Date: 20100525
  Serious: Yes (Hospitalization)
  Sender: FDA-Public Use
  Company Number: BR-ROCHE-672393

PATIENT
  Sex: Male

DRUGS (2)
  1. ROACUTAN [Suspect]
     Indication: ACNE
     Route: 065
  2. ROACUTAN [Suspect]
     Route: 065
     Dates: start: 20090101

REACTIONS (2)
  - INFECTIOUS MONONUCLEOSIS [None]
  - INFLUENZA [None]
